FAERS Safety Report 7626150-4 (Version None)
Quarter: 2011Q3

REPORT INFORMATION
  Report Type: 
  Country: None (occurrence: None)
  Receive Date: 20110721
  Receipt Date: 20110715
  Transmission Date: 20111222
  Serious: Yes (Hospitalization)
  Sender: FDA-Public Use
  Company Number: JP-B.I. PHARMACEUTICALS,INC./RIDGEFIELD-2011-BP-17889NB

PATIENT
  Age: 71 Year
  Sex: Female

DRUGS (4)
  1. URINORM [Concomitant]
     Dosage: 25 MG
     Route: 065
  2. PRADAXA [Suspect]
     Indication: ATRIAL FIBRILLATION
     Dosage: 150 MG
     Route: 048
     Dates: start: 20110622, end: 20110625
  3. CIBENOL [Concomitant]
     Dosage: 100 MG
     Route: 065
  4. LASIX [Concomitant]
     Dosage: 20 MG
     Route: 065

REACTIONS (4)
  - CYSTITIS [None]
  - STOMATITIS [None]
  - ARRHYTHMIA [None]
  - ANAL HAEMORRHAGE [None]
